FAERS Safety Report 21642032 (Version 3)
Quarter: 2023Q4

REPORT INFORMATION
  Report Type: Other
  Country: DE (occurrence: None)
  Receive Date: 20221125
  Receipt Date: 20231004
  Transmission Date: 20240109
  Serious: Yes (Hospitalization)
  Sender: FDA-Public Use
  Company Number: DE-ROCHE-2698406

PATIENT
  Age: 56 Year
  Sex: Female

DRUGS (9)
  1. OCREVUS [Suspect]
     Active Substance: OCRELIZUMAB
     Indication: Primary progressive multiple sclerosis
     Dosage: 600 MG FREQUENCY: 180 DAYS
     Route: 042
     Dates: start: 20190328
  2. OCREVUS [Suspect]
     Active Substance: OCRELIZUMAB
     Route: 042
     Dates: start: 20200827
  3. OCREVUS [Suspect]
     Active Substance: OCRELIZUMAB
     Route: 042
     Dates: start: 20210224
  4. OCREVUS [Suspect]
     Active Substance: OCRELIZUMAB
     Route: 042
     Dates: start: 20230912
  5. BISOPROLOL [Concomitant]
     Active Substance: BISOPROLOL\BISOPROLOL FUMARATE
  6. LERCANIDIPINE [Concomitant]
     Active Substance: LERCANIDIPINE
  7. SPIRONOLACTONE [Concomitant]
     Active Substance: SPIRONOLACTONE
  8. DALFAMPRIDINE [Concomitant]
     Active Substance: DALFAMPRIDINE
  9. CALCIUM [Concomitant]
     Active Substance: CALCIUM

REACTIONS (14)
  - Pain in extremity [Recovered/Resolved]
  - Fatigue [Recovered/Resolved]
  - Uhthoff^s phenomenon [Recovered/Resolved]
  - Fall [Unknown]
  - Haematoma [Recovered/Resolved]
  - Musculoskeletal chest pain [Recovered/Resolved]
  - Apathy [Recovered/Resolved]
  - Asthenia [Recovered/Resolved]
  - Drug ineffective [Unknown]
  - Calcium deficiency [Recovered/Resolved]
  - COVID-19 [Recovered/Resolved]
  - Limb discomfort [Not Recovered/Not Resolved]
  - Fluid retention [Not Recovered/Not Resolved]
  - Discharge [Not Recovered/Not Resolved]

NARRATIVE: CASE EVENT DATE: 20190328
